FAERS Safety Report 18916743 (Version 2)
Quarter: 2021Q1

REPORT INFORMATION
  Report Type: Spontaneous
  Country: BR (occurrence: BR)
  Receive Date: 20210219
  Receipt Date: 20210329
  Transmission Date: 20210420
  Serious: No
  Sender: FDA-Public Use
  Company Number: BR-UCBSA-2021008214

PATIENT
  Sex: Male

DRUGS (1)
  1. NEUPRO [Suspect]
     Active Substance: ROTIGOTINE
     Indication: PRODUCT USED FOR UNKNOWN INDICATION
     Dosage: 8 MILLIGRAM, ONCE DAILY (QD)
     Route: 062

REACTIONS (2)
  - Device adhesion issue [Unknown]
  - Product dose omission issue [Unknown]
